FAERS Safety Report 6151021-2 (Version None)
Quarter: 2009Q2

REPORT INFORMATION
  Report Type: 
  Country: None (occurrence: None)
  Receive Date: 20090410
  Receipt Date: 20090227
  Transmission Date: 20091009
  Serious: No
  Sender: FDA-Public Use
  Company Number: A0770714A

PATIENT
  Age: 53 Year
  Sex: Female

DRUGS (3)
  1. TYKERB [Suspect]
     Indication: BREAST CANCER
     Dosage: 1250MG PER DAY
     Route: 048
     Dates: start: 20080101
  2. XELODA [Suspect]
     Indication: BREAST CANCER
     Route: 048
     Dates: end: 20090101
  3. HERCEPTIN [Concomitant]

REACTIONS (2)
  - RASH [None]
  - SCAR [None]
